FAERS Safety Report 5792378-1 (Version None)
Quarter: 2008Q2

REPORT INFORMATION
  Report Type: 
  Country: None (occurrence: None)
  Receive Date: 20080626
  Receipt Date: 20080215
  Transmission Date: 20081010
  Serious: No
  Sender: FDA-Public Use
  Company Number: US-ASTRAZENECA-2008UW03210

PATIENT
  Age: 1 Year
  Sex: Male
  Weight: 11.8 kg

DRUGS (5)
  1. PULMICORT RESPULES [Suspect]
     Indication: NASAL CONGESTION
     Dosage: 0.25 MG/ML
     Route: 055
  2. BACLOFEN [Concomitant]
  3. REGLAN [Concomitant]
  4. CARBAMAZEPINE [Concomitant]
  5. RANITIDINE HCL [Concomitant]

REACTIONS (1)
  - INCREASED UPPER AIRWAY SECRETION [None]
